FAERS Safety Report 8096355-X (Version None)
Quarter: 2012Q1

REPORT INFORMATION
  Report Type: 
  Country: None (occurrence: None)
  Receive Date: 20120126
  Receipt Date: 20120117
  Transmission Date: 20120608
  Serious: Yes (Hospitalization)
  Sender: FDA-Public Use
  Company Number: TCI2011A06413

PATIENT
  Age: 60 Year
  Sex: Male

DRUGS (13)
  1. LIVALO [Suspect]
     Indication: DYSLIPIDAEMIA
     Dosage: (2 MG)
     Route: 048
     Dates: end: 20111110
  2. TAKEPRON OD TABLETS 15 (LANSPRAZOLE) [Suspect]
     Dosage: 15 MG (15 MG, 1 IN 1 D)
     Route: 048
     Dates: start: 20111005, end: 20111110
  3. WARFARIN SODIUM [Suspect]
     Indication: ARTERIAL THROMBOSIS
     Dosage: (3 MG)
     Route: 048
     Dates: end: 20111110
  4. PLAVIX [Suspect]
     Indication: ACUTE CORONARY SYNDROME
     Dosage: (75 MG)
     Route: 048
     Dates: end: 20111110
  5. CELOOP (TEPRENONE) [Suspect]
     Indication: GASTRITIS
     Dosage: (50 MG)
     Route: 048
     Dates: end: 20111110
  6. ENALAPRIL MALEATE [Suspect]
     Indication: HYPERTENSION
     Dosage: (5 MG)
     Route: 048
     Dates: start: 20111116, end: 20111124
  7. ENALAPRIL MALEATE [Suspect]
     Indication: HYPERTENSION
     Dosage: (5 MG)
     Route: 048
     Dates: end: 20111110
  8. MAGNESIUM OXIDE [Suspect]
     Indication: CONSTIPATION
     Dosage: (2 GM)
     Route: 048
     Dates: end: 20111110
  9. CARVEDILOL [Suspect]
     Indication: HYPERTENSION
     Dosage: (2.5 MG)
     Route: 048
     Dates: end: 20111110
  10. LASIX [Suspect]
     Indication: HYPERTENSION
     Dates: start: 20111116, end: 20111124
  11. LASIX [Suspect]
     Indication: HYPERTENSION
     Dates: end: 20111110
  12. ASPIRIN [Suspect]
     Indication: THROMBOSIS PROPHYLAXIS
     Dosage: (100 MG)
     Route: 048
     Dates: start: 20111116, end: 20111124
  13. PURSENNID (SENNOSIDE A+B CALCIUM) [Suspect]
     Indication: CONSTIPATION
     Dosage: WARF(12 MG)
     Route: 048
     Dates: end: 20111110

REACTIONS (3)
  - SEPSIS [None]
  - ORAL CANDIDIASIS [None]
  - GRANULOCYTOPENIA [None]
